FAERS Safety Report 12965257 (Version 1)
Quarter: 2016Q4

REPORT INFORMATION
  Report Type: Spontaneous
  Country: US (occurrence: US)
  Receive Date: 20161122
  Receipt Date: 20161122
  Transmission Date: 20170207
  Serious: No
  Sender: FDA-Public Use
  Company Number: US-PERNIX THERAPEUTICS-2016PT000185

PATIENT

DRUGS (1)
  1. ZOHYDRO [Suspect]
     Active Substance: HYDROCODONE BITARTRATE
     Indication: PAIN
     Dosage: 20 MG, BID
     Route: 048
     Dates: start: 20160829

REACTIONS (1)
  - Drug ineffective [Not Recovered/Not Resolved]

NARRATIVE: CASE EVENT DATE: 20160829
